FAERS Safety Report 18932181 (Version 1)
Quarter: 2021Q1

REPORT INFORMATION
  Report Type: Other
  Country: CA (occurrence: CA)
  Receive Date: 20210224
  Receipt Date: 20210224
  Transmission Date: 20210420
  Serious: Yes (Other)
  Sender: FDA-Public Use
  Company Number: CA-CELLTRION INC.-2021CA002226

PATIENT

DRUGS (9)
  1. MORPHINE [Concomitant]
     Active Substance: MORPHINE
  2. RITUXIMAB (UNKNOWN) [Suspect]
     Active Substance: RITUXIMAB
     Indication: GRANULOMATOSIS WITH POLYANGIITIS
     Route: 065
  3. OTEZLA [Concomitant]
     Active Substance: APREMILAST
  4. RAMIPRIL. [Concomitant]
     Active Substance: RAMIPRIL
  5. INDOMETHACIN [INDOMETACIN] [Concomitant]
     Active Substance: INDOMETHACIN
  6. PANTOPRAZOLE [Concomitant]
     Active Substance: PANTOPRAZOLE
  7. PREDNISONE. [Concomitant]
     Active Substance: PREDNISONE
  8. RISEDRONATE [Concomitant]
     Active Substance: RISEDRONATE SODIUM
  9. MAGNESIUM [Concomitant]
     Active Substance: MAGNESIUM

REACTIONS (4)
  - Psoriasis [Unknown]
  - Nasal septum deviation [Unknown]
  - Arthralgia [Unknown]
  - Hypertension [Unknown]
